FAERS Safety Report 21880058 (Version 1)
Quarter: 2023Q1

REPORT INFORMATION
  Report Type: Report from Study
  Country: BR (occurrence: None)
  Receive Date: 20230118
  Receipt Date: 20230118
  Transmission Date: 20230417
  Serious: Yes (Congenital Anomaly)
  Sender: FDA-Public Use
  Company Number: BR-Merck Healthcare KGaA-9377220

PATIENT

DRUGS (4)
  1. MAVENCLAD [Suspect]
     Active Substance: CLADRIBINE
     Indication: Multiple sclerosis
     Dosage: YEAR ONE MONTH ONE THERAPY AT A DOSAGE OF 2 TABLETS ON DAY 1 AND 1 TABLET FROM DAY 2 TO 5
     Route: 048
     Dates: start: 20200709, end: 20200713
  2. MAVENCLAD [Suspect]
     Active Substance: CLADRIBINE
     Dosage: YEAR ONE MONTH TWO THERAPY AT A DOSAGE OF 2 TABLETS ON DAY 1 AND 1 TABLET FROM DAY 2 TO 5
     Route: 048
     Dates: start: 20200809, end: 20200813
  3. MAVENCLAD [Suspect]
     Active Substance: CLADRIBINE
     Dosage: YEAR TWO MONTH ONE THERAPY AT A DOSAGE OF 2 TABLETS ON DAY 1 AND 1 TABLET FROM DAY 2 TO 5
     Route: 048
     Dates: start: 20210712
  4. MAVENCLAD [Suspect]
     Active Substance: CLADRIBINE
     Dosage: YEAR TWO MONTH TWO THERAPY AT A DOSAGE OF 2 TABLETS ON DAY 1 AND 1 TABLET FROM DAY 2 TO 5
     Route: 048
     Dates: start: 20210816, end: 20210820

REACTIONS (1)
  - Trisomy 21 [Not Recovered/Not Resolved]
